FAERS Safety Report 21873863 (Version 1)
Quarter: 2023Q1

REPORT INFORMATION
  Report Type: Spontaneous
  Country: US (occurrence: US)
  Receive Date: 20230117
  Receipt Date: 20230117
  Transmission Date: 20230418
  Serious: No
  Sender: FDA-Public Use
  Company Number: US-NOVOPROD-951624

PATIENT
  Sex: Female

DRUGS (1)
  1. RYBELSUS [Suspect]
     Active Substance: SEMAGLUTIDE
     Indication: Diabetes mellitus
     Dosage: UNK
     Route: 058

REACTIONS (6)
  - Poor peripheral circulation [Unknown]
  - Contusion [Unknown]
  - Burning sensation [Unknown]
  - Sensitive skin [Unknown]
  - Rash [Unknown]
  - Product container issue [Recovered/Resolved]
